FAERS Safety Report 9052355 (Version 1)
Quarter: 2013Q1

REPORT INFORMATION
  Report Type: Spontaneous
  Country: US (occurrence: US)
  Receive Date: 20130207
  Receipt Date: 20130207
  Transmission Date: 20140127
  Serious: Yes (Hospitalization)
  Sender: FDA-Public Use
  Company Number: US-ABBOTT-13P-163-1043076-00

PATIENT
  Sex: Male
  Weight: 135.75 kg

DRUGS (4)
  1. ANDROGEL [Suspect]
     Indication: BLOOD TESTOSTERONE DECREASED
     Dosage: 2 PUMPS DAILY
     Route: 061
     Dates: start: 2011
  2. ANDROGEL [Suspect]
     Dosage: 3 PUMPS DAILY
     Route: 061
  3. ANDROGEL [Suspect]
     Dosage: 4 PUMPS DAILY
     Route: 061
  4. MANY OTHER (22) UNKNOWN MEDICATIONS [Concomitant]
     Indication: PRODUCT USED FOR UNKNOWN INDICATION

REACTIONS (12)
  - Food poisoning [Recovered/Resolved]
  - Drug ineffective [Not Recovered/Not Resolved]
  - Vitiligo [Not Recovered/Not Resolved]
  - Haematemesis [Recovered/Resolved]
  - Diarrhoea [Recovered/Resolved]
  - Blood urine [Recovered/Resolved]
  - Asthenia [Not Recovered/Not Resolved]
  - Weight decreased [Not Recovered/Not Resolved]
  - Muscle atrophy [Not Recovered/Not Resolved]
  - Gallbladder disorder [Recovered/Resolved]
  - Abasia [Recovered/Resolved]
  - Laboratory test abnormal [Recovered/Resolved]
